FAERS Safety Report 5525373-8 (Version None)
Quarter: 2007Q4

REPORT INFORMATION
  Report Type: 
  Country: None (occurrence: None)
  Receive Date: 20071126
  Receipt Date: 20071116
  Transmission Date: 20080405
  Serious: Yes (Hospitalization)
  Sender: FDA-Public Use
  Company Number: FR-ROCHE-532466

PATIENT
  Age: 53 Year
  Sex: Male

DRUGS (4)
  1. CYMEVAN [Suspect]
     Route: 048
     Dates: start: 20070601
  2. CYMEVAN [Suspect]
     Route: 048
     Dates: start: 20070927, end: 20071010
  3. FOSCAVIR [Concomitant]
  4. FOSCAVIR [Concomitant]

REACTIONS (1)
  - BONE MARROW FAILURE [None]
